FAERS Safety Report 4570415-X (Version None)
Quarter: 2005Q1

REPORT INFORMATION
  Report Type: 
  Country: None (occurrence: None)
  Receive Date: 20050203
  Receipt Date: 20050203
  Transmission Date: 20050727
  Serious: Yes (Disabling)
  Sender: FDA-Public Use
  Company Number: None

PATIENT
  Age: 30 Year
  Sex: Male
  Weight: 81.6475 kg

DRUGS (1)
  1. ZICAM    MATRIXX [Suspect]

REACTIONS (2)
  - AGEUSIA [None]
  - ANOSMIA [None]
